FAERS Safety Report 19308457 (Version 1)
Quarter: 2021Q2

REPORT INFORMATION
  Report Type: Spontaneous
  Country: US (occurrence: US)
  Receive Date: 20210526
  Receipt Date: 20210526
  Transmission Date: 20210717
  Serious: Yes (Other)
  Sender: FDA-Public Use
  Company Number: None

PATIENT
  Age: 63 Year
  Sex: Female
  Weight: 67.5 kg

DRUGS (6)
  1. RYBELSUS [Suspect]
     Active Substance: SEMAGLUTIDE
     Route: 048
  2. METHOTREXIN [Concomitant]
  3. METFORMIN [Concomitant]
     Active Substance: METFORMIN HYDROCHLORIDE
  4. MULTIVITAMIN [Concomitant]
     Active Substance: VITAMINS
  5. SIMVASTATIN. [Concomitant]
     Active Substance: SIMVASTATIN
  6. JARDIANCE [Concomitant]
     Active Substance: EMPAGLIFLOZIN

REACTIONS (6)
  - Vertigo [None]
  - Decreased appetite [None]
  - Vomiting [None]
  - Ageusia [None]
  - Nausea [None]
  - Constipation [None]

NARRATIVE: CASE EVENT DATE: 20210525
